FAERS Safety Report 16111041 (Version 2)
Quarter: 2019Q2

REPORT INFORMATION
  Report Type: Spontaneous
  Country: US (occurrence: US)
  Receive Date: 20190325
  Receipt Date: 20190429
  Transmission Date: 20190711
  Serious: No
  Sender: FDA-Public Use
  Company Number: US-ASTRAZENECA-2019SE32165

PATIENT
  Sex: Female

DRUGS (1)
  1. PULMICORT FLEXHALER [Suspect]
     Active Substance: BUDESONIDE
     Dosage: 180.0UG AS REQUIRED
     Route: 055

REACTIONS (8)
  - Aphonia [Unknown]
  - Circumstance or information capable of leading to medication error [Unknown]
  - Device failure [Unknown]
  - Dyspnoea [Unknown]
  - Confusional state [Unknown]
  - Malaise [Unknown]
  - Intentional product misuse [Unknown]
  - Device malfunction [Unknown]
